FAERS Safety Report 6386620-6 (Version None)
Quarter: 2009Q4

REPORT INFORMATION
  Report Type: 
  Country: None (occurrence: None)
  Receive Date: 20091002
  Receipt Date: 20090921
  Transmission Date: 20100525
  Serious: Yes (Hospitalization, Disabling, Other)
  Sender: FDA-Public Use
  Company Number: BR-ELI_LILLY_AND_COMPANY-BR200904001654

PATIENT
  Sex: Female

DRUGS (1)
  1. FORTEO [Suspect]
     Indication: OSTEOPOROSIS
     Dosage: UNK, UNKNOWN
     Route: 065

REACTIONS (7)
  - ABASIA [None]
  - FALL [None]
  - FEMUR FRACTURE [None]
  - FRACTURE [None]
  - INTESTINAL OPERATION [None]
  - LOWER LIMB FRACTURE [None]
  - PNEUMONIA [None]
